FAERS Safety Report 13982478 (Version 1)
Quarter: 2017Q3

REPORT INFORMATION
  Report Type: Spontaneous
  Country: US (occurrence: None)
  Receive Date: 20170918
  Receipt Date: 20170918
  Transmission Date: 20171128
  Serious: Yes (Other)
  Sender: FDA-Public Use
  Company Number: None

PATIENT
  Age: 68 Year
  Sex: Female
  Weight: 117 kg

DRUGS (3)
  1. LEVOTHYROXIN [Concomitant]
     Active Substance: LEVOTHYROXINE
  2. VITAMIN C [Concomitant]
     Active Substance: ASCORBIC ACID
  3. PROAIR HFA [Suspect]
     Active Substance: ALBUTEROL SULFATE
     Indication: ASTHMA
     Dosage: FREQUENCY - 1-2  AS NEEDED
     Route: 055
     Dates: start: 20161230, end: 20170502

REACTIONS (1)
  - Tremor [None]

NARRATIVE: CASE EVENT DATE: 201705
